FAERS Safety Report 5245029-9 (Version None)
Quarter: 2007Q1

REPORT INFORMATION
  Report Type: 
  Country: None (occurrence: None)
  Receive Date: 20070223
  Receipt Date: 20070213
  Transmission Date: 20070707
  Serious: Yes (Other)
  Sender: FDA-Public Use
  Company Number: GB-SOLVAY-00306003375

PATIENT
  Age: 14 Year
  Sex: Female
  Weight: 45.4 kg

DRUGS (8)
  1. COLOMYCIN [Concomitant]
     Indication: CYSTIC FIBROSIS
     Dosage: DAILY DOSE:  UNKNOWN; FREQUENCY: TWICE A DAY; ROUTE: NEB
     Route: 065
  2. CREON [Suspect]
     Indication: CYSTIC FIBROSIS
     Dosage: 25 - 30 USED AS NEEDED
     Route: 048
     Dates: end: 20060328
  3. URSODIOL [Concomitant]
     Indication: CYSTIC FIBROSIS
     Dosage: DAILY DOSE: 300 MILLIGRAM(S)
     Route: 048
  4. AZITHROMYCIN [Concomitant]
     Indication: CYSTIC FIBROSIS
     Dosage: DAILY DOSE:  UNKNOWN; FREQUENCY: ONCE
     Route: 048
  5. VENTOLIN [Concomitant]
     Indication: CYSTIC FIBROSIS
     Dosage: 2 PUFFS USED AS NEEDED
     Route: 055
  6. QVAR 40 [Concomitant]
     Indication: CYSTIC FIBROSIS
     Dosage: DAILY DOSE: 4 PUFFS
     Route: 055
  7. PREDNISOLONE [Concomitant]
     Indication: CYSTIC FIBROSIS
     Dosage: DAILY DOSE: 5 MILLIGRAM(S); FREQUENCY: ONCE
     Route: 048
  8. OMEPRAZOLE [Concomitant]
     Indication: CYSTIC FIBROSIS
     Dosage: DAILY DOSE: 10 MILLIGRAM(S); FREQUENCY: ONCE
     Route: 048

REACTIONS (5)
  - ABNORMAL FAECES [None]
  - DISTAL ILEAL OBSTRUCTION SYNDROME [None]
  - DRUG INEFFECTIVE [None]
  - PAINFUL DEFAECATION [None]
  - WEIGHT GAIN POOR [None]
